FAERS Safety Report 12159134 (Version 1)
Quarter: 2016Q1

REPORT INFORMATION
  Report Type: Spontaneous
  Country: US (occurrence: None)
  Receive Date: 20160307
  Receipt Date: 20160307
  Transmission Date: 20160526
  Serious: Yes (Hospitalization, Disabling, Other)
  Sender: FDA-Public Use
  Company Number: None

PATIENT
  Age: 47 Year
  Sex: Male
  Weight: 72.58 kg

DRUGS (3)
  1. MESALAMINE. [Concomitant]
     Active Substance: MESALAMINE
  2. FERROUS SULFATE [Concomitant]
     Active Substance: FERROUS SULFATE\FERROUS SULFATE, DRIED
  3. REMICADE [Suspect]
     Active Substance: INFLIXIMAB
     Indication: COLITIS ULCERATIVE
     Dates: start: 20151217, end: 20160114

REACTIONS (4)
  - Malaise [None]
  - Infection [None]
  - Paralysis [None]
  - Hypersensitivity [None]

NARRATIVE: CASE EVENT DATE: 20160103
